FAERS Safety Report 8332680-2 (Version None)
Quarter: 2012Q2

REPORT INFORMATION
  Report Type: 
  Country: None (occurrence: None)
  Receive Date: 20120503
  Receipt Date: 20120425
  Transmission Date: 20120825
  Serious: Yes (Hospitalization, Other)
  Sender: FDA-Public Use
  Company Number: US-BAYER-2012-008899

PATIENT
  Age: 23 Year
  Sex: Female
  Weight: 121.54 kg

DRUGS (8)
  1. NEOMYCIN/POLYMYCIN/HC OPHTHALMIC SUSPENSION [Concomitant]
  2. SINGULAIR [Concomitant]
     Dosage: 10 MG, UNK
     Route: 048
     Dates: start: 20091007
  3. APAP W/ CODEINE [Concomitant]
     Route: 048
  4. YAZ [Suspect]
     Dosage: UNK
     Dates: start: 20090801, end: 20100101
  5. PREDNISONE [Concomitant]
     Dosage: 10 MG, UNK
     Route: 048
     Dates: start: 20091007
  6. ALBUTEROL [Concomitant]
     Dosage: 0.083 %, UNK
     Dates: start: 20091007
  7. AZITHROMYCIN [Concomitant]
     Dosage: 250 MG, UNK
     Route: 048
     Dates: start: 20090814
  8. CETIRIZINE [Concomitant]
     Dosage: 10 MG, UNK
     Route: 048
     Dates: start: 20090901

REACTIONS (3)
  - CHOLECYSTITIS CHRONIC [None]
  - CHOLELITHIASIS [None]
  - INJURY [None]
